FAERS Safety Report 5851555-1 (Version None)
Quarter: 2008Q3

REPORT INFORMATION
  Report Type: 
  Country: None (occurrence: None)
  Receive Date: 20080820
  Receipt Date: 20080811
  Transmission Date: 20090109
  Serious: Yes (Other)
  Sender: FDA-Public Use
  Company Number: US-AMGEN-QUU301071

PATIENT
  Sex: Male
  Weight: 3.6 kg

DRUGS (3)
  1. ENBREL [Suspect]
     Indication: RHEUMATOID ARTHRITIS
     Route: 064
     Dates: start: 20011101
  2. ENBREL [Suspect]
     Indication: PSORIASIS
  3. PREDNISONE TAB [Concomitant]

REACTIONS (1)
  - PERIARTICULAR DISORDER [None]
